FAERS Safety Report 9537977 (Version 2)
Quarter: 2013Q4

REPORT INFORMATION
  Report Type: Spontaneous
  Country: US (occurrence: US)
  Receive Date: 20130919
  Receipt Date: 20131003
  Transmission Date: 20140711
  Serious: Yes (Death, Other)
  Sender: FDA-Public Use
  Company Number: US-GILEAD-2013-0083645

PATIENT
  Age: 84 Year
  Sex: Male

DRUGS (4)
  1. LETAIRIS [Suspect]
     Indication: PULMONARY HYPERTENSION
     Dosage: 5 MG, QD
     Dates: start: 20110516, end: 20130910
  2. LETAIRIS [Suspect]
     Indication: EISENMENGER^S SYNDROME
  3. LETAIRIS [Suspect]
     Indication: HEART DISEASE CONGENITAL
  4. LETAIRIS [Suspect]
     Indication: ANOMALOUS PULMONARY VENOUS CONNECTION

REACTIONS (4)
  - Death [Fatal]
  - General physical health deterioration [Unknown]
  - Hip fracture [Unknown]
  - Fall [Unknown]
